FAERS Safety Report 19158797 (Version 11)
Quarter: 2025Q4

REPORT INFORMATION
  Report Type: Report from Study
  Country: US (occurrence: US)
  Receive Date: 20210420
  Receipt Date: 20251003
  Transmission Date: 20260117
  Serious: Yes (Hospitalization, Other)
  Sender: TAKEDA
  Company Number: US-TAKEDA-US202016467

PATIENT
  Sex: Female

DRUGS (4)
  1. HUMAN IMMUNOGLOBULIN G [Suspect]
     Active Substance: HUMAN IMMUNOGLOBULIN G
     Indication: Primary immunodeficiency syndrome
     Dosage: UNK
  2. HUMAN IMMUNOGLOBULIN G [Suspect]
     Active Substance: HUMAN IMMUNOGLOBULIN G
     Indication: Immunodeficiency common variable
     Dosage: UNK
  3. HUMAN IMMUNOGLOBULIN G [Suspect]
     Active Substance: HUMAN IMMUNOGLOBULIN G
     Indication: Primary immunodeficiency syndrome
     Dosage: UNK
  4. HUMAN IMMUNOGLOBULIN G [Suspect]
     Active Substance: HUMAN IMMUNOGLOBULIN G
     Indication: Immunodeficiency common variable

REACTIONS (26)
  - Procedural pain [Unknown]
  - Postoperative wound infection [Unknown]
  - Skin laceration [Unknown]
  - Poor quality sleep [Unknown]
  - Pain [Unknown]
  - Infected skin ulcer [Unknown]
  - Product availability issue [Unknown]
  - Urinary tract infection [Unknown]
  - Inappropriate schedule of product administration [Unknown]
  - Radiculopathy [Unknown]
  - Blood immunoglobulin M decreased [Unknown]
  - Wheelchair user [Unknown]
  - Allergy to metals [Unknown]
  - Catheter site pruritus [Unknown]
  - Weight increased [Unknown]
  - Nasopharyngitis [Unknown]
  - Anal incontinence [Unknown]
  - Poor venous access [Unknown]
  - Skin ulcer [Unknown]
  - Eczema [Unknown]
  - Chronic obstructive pulmonary disease [Unknown]
  - Sinus congestion [Unknown]
  - Weight decreased [Unknown]
  - Gait disturbance [Unknown]
  - Immunoglobulins decreased [Unknown]
  - Infusion site pain [Unknown]
